FAERS Safety Report 10408754 (Version 1)
Quarter: 2014Q3

REPORT INFORMATION
  Report Type: Spontaneous
  Country: US (occurrence: None)
  Receive Date: 20140822
  Receipt Date: 20140822
  Transmission Date: 20150326
  Serious: Yes (Other)
  Sender: FDA-Public Use
  Company Number: None

PATIENT
  Sex: Female
  Weight: 65.77 kg

DRUGS (9)
  1. ARMOUR THYROID [Concomitant]
     Active Substance: THYROID, PORCINE\THYROID, UNSPECIFIED
  2. VITAMIN B COMPLEX [Concomitant]
     Active Substance: CYANOCOBALAMIN\DEXPANTHENOL\NIACINAMIDE\PYRIDOXINE HYDROCHLORIDE\RIBOFLAVIN 5^-PHOSPHATE SODIUM\THIAMINE HYDROCHLORIDE\VITAMIN B COMPLEX
  3. GABAPENTIN. [Suspect]
     Active Substance: GABAPENTIN
     Indication: MYOCLONUS
     Dosage: WAS ON 4 PILLS  BED MOUTH
     Route: 048
     Dates: start: 201311, end: 201405
  4. CLONAZEPAM. [Concomitant]
     Active Substance: CLONAZEPAM
  5. MITAZAPINE [Concomitant]
  6. NEURONTIN [Concomitant]
     Active Substance: GABAPENTIN
  7. BIOTIN [Concomitant]
     Active Substance: BIOTIN
  8. FLORADIX (IRON) [Concomitant]
  9. GABAPENTIN. [Suspect]
     Active Substance: GABAPENTIN
     Indication: RESTLESS LEGS SYNDROME
     Dosage: WAS ON 4 PILLS  BED MOUTH
     Route: 048
     Dates: start: 201311, end: 201405

REACTIONS (2)
  - Product quality issue [None]
  - Palpitations [None]
